FAERS Safety Report 5635378-4 (Version None)
Quarter: 2008Q1

REPORT INFORMATION
  Report Type: 
  Country: None (occurrence: None)
  Receive Date: 20080222
  Receipt Date: 20080212
  Transmission Date: 20080703
  Serious: Yes (Other)
  Sender: FDA-Public Use
  Company Number: US-ABBOTT-08P-163-0438460-00

PATIENT
  Sex: Male
  Weight: 92.752 kg

DRUGS (2)
  1. HUMIRA [Suspect]
     Indication: CROHN'S DISEASE
     Route: 058
     Dates: start: 20080116
  2. HUMIRA [Suspect]
     Dates: start: 20080201

REACTIONS (1)
  - INTRACRANIAL ANEURYSM [None]
